FAERS Safety Report 8156055-4 (Version None)
Quarter: 2012Q1

REPORT INFORMATION
  Report Type: 
  Country: None (occurrence: None)
  Receive Date: 20120222
  Receipt Date: 20120214
  Transmission Date: 20120608
  Serious: Yes (Other)
  Sender: FDA-Public Use
  Company Number: SE-SHIRE-ALL1-2012-00860

PATIENT
  Sex: Male

DRUGS (3)
  1. ELAPRASE [Suspect]
     Indication: MUCOPOLYSACCHARIDOSIS II
     Dosage: 2 INFUSIONS OF 1OR 2 VIALS, 1X/WEEK
     Route: 041
  2. ANTIHISTAMINES [Concomitant]
     Indication: PREMEDICATION
  3. SOLU-CORTEF [Concomitant]
     Indication: PREMEDICATION
     Dosage: UNK, UNKNOWN
     Route: 065

REACTIONS (3)
  - URTICARIA [None]
  - INFUSION RELATED REACTION [None]
  - DYSPNOEA [None]
